FAERS Safety Report 4524228-5 (Version None)
Quarter: 2004Q4

REPORT INFORMATION
  Report Type: 
  Country: None (occurrence: None)
  Receive Date: 20041209
  Receipt Date: 20041129
  Transmission Date: 20050328
  Serious: Yes (Other)
  Sender: FDA-Public Use
  Company Number: OMPQ-NO-0411S-1363

PATIENT
  Age: 81 Year
  Sex: Female
  Weight: 41.3 kg

DRUGS (12)
  1. OMNIPAQUE 140 [Suspect]
     Indication: ARTERIAL INJURY
     Dosage: 160 ML, SINGLE DOSE, I.A.
     Route: 042
     Dates: start: 20041026, end: 20041026
  2. OMNIPAQUE 140 [Suspect]
     Indication: CEREBROVASCULAR DISORDER
     Dosage: 160 ML, SINGLE DOSE, I.A.
     Route: 042
     Dates: start: 20041026, end: 20041026
  3. SODIUM LACTATE, POTASSIUM CHLORIDE (LOW MOLECULAR DEXTRAN L) [Concomitant]
  4. GLUCOSE, AMINO ACIDS NOS, ELECTROLYTES NOS (AMINOFLUID) [Concomitant]
  5. BLOOD, CALF, DEPROT., LMW PORTION (SOLCOSERYL) [Concomitant]
  6. MECLOFENOXATE HYDROCHLORIDE (LUCIDRIL) [Concomitant]
  7. CITICOLINE (NICHOLIN) [Concomitant]
  8. GLYCINE MAX SEED OIL (INTRALIPOS) [Concomitant]
  9. CEFMETAZOLE SODIUM (CEFMETAZON) [Concomitant]
  10. VALPROATE SODIUM (EPIRENAT) [Concomitant]
  11. PHENYTOIN (ALEVIATIN) [Concomitant]
  12. NICERGOLINE (SALUMOSIN) [Concomitant]

REACTIONS (2)
  - HEPATIC ENZYME ABNORMAL [None]
  - HEPATIC FUNCTION ABNORMAL [None]
